FAERS Safety Report 9355959 (Version 1)
Quarter: 2013Q2

REPORT INFORMATION
  Report Type: Spontaneous
  Country: GB (occurrence: GB)
  Receive Date: 20130619
  Receipt Date: 20130619
  Transmission Date: 20140414
  Serious: Yes (Other)
  Sender: FDA-Public Use
  Company Number: GB-MERCK-1306GBR006858

PATIENT
  Sex: 0

DRUGS (1)
  1. JANUMET [Suspect]

REACTIONS (2)
  - Shoulder operation [Unknown]
  - Circumstance or information capable of leading to medication error [Unknown]
